FAERS Safety Report 10568558 (Version 1)
Quarter: 2014Q4

REPORT INFORMATION
  Report Type: Other
  Country: DK (occurrence: DK)
  Receive Date: 20141106
  Receipt Date: 20141106
  Transmission Date: 20150529
  Serious: Yes (Other)
  Sender: FDA-Public Use
  Company Number: DK-MYLANLABS-2014M1009044

PATIENT

DRUGS (5)
  1. TAMOXIFEN [Suspect]
     Active Substance: TAMOXIFEN
     Indication: BREAST CANCER
     Dosage: GIVEN IN 2.5 YEARS. DOSE UNKNOWN
     Dates: end: 20080505
  2. ARIMIDEX [Suspect]
     Active Substance: ANASTROZOLE
     Indication: BREAST CANCER
     Dosage: DOSAGE UNKNOWN DEVICE
     Dates: start: 2008, end: 20101022
  3. FLUOROURACIL. [Suspect]
     Active Substance: FLUOROURACIL
     Indication: CHEMOTHERAPY
     Dosage: DOSE: 950 ( UNKNOWN DEVICE ) EVERY 3 WEEKS
     Route: 042
     Dates: start: 20050329, end: 20050811
  4. CYCLOPHOSPHAMIDE. [Suspect]
     Active Substance: CYCLOPHOSPHAMIDE
     Indication: CHEMOTHERAPY
     Dosage: DOSE: 950 ( UNKNOWN DEVICE ) EVERY 3 WEEKS
     Route: 042
     Dates: start: 20050329, end: 20050811
  5. EPIRUBICIN [Suspect]
     Active Substance: EPIRUBICIN
     Indication: CHEMOTHERAPY
     Dosage: DOSAGE : 95 ( UNKNOWN DEVICE ) EVERY 3 WEEKS
     Route: 042
     Dates: start: 20050329, end: 20050811

REACTIONS (8)
  - Memory impairment [Recovered/Resolved]
  - Disturbance in attention [Not Recovered/Not Resolved]
  - Periodontitis [Unknown]
  - Asthenia [Not Recovered/Not Resolved]
  - Osteoporosis [Not Recovered/Not Resolved]
  - Arthralgia [Not Recovered/Not Resolved]
  - Fatigue [Recovered/Resolved]
  - Motor dysfunction [Not Recovered/Not Resolved]

NARRATIVE: CASE EVENT DATE: 200504
